FAERS Safety Report 23397398 (Version 1)
Quarter: 2024Q1

REPORT INFORMATION
  Report Type: Spontaneous
  Country: CA (occurrence: CA)
  Receive Date: 20240112
  Receipt Date: 20240112
  Transmission Date: 20240410
  Serious: Yes (Hospitalization)
  Sender: FDA-Public Use
  Company Number: CA-PFIZER INC-202400007683

PATIENT
  Age: 47 Year
  Sex: Male
  Weight: 70 kg

DRUGS (17)
  1. CARBOPLATIN [Suspect]
     Active Substance: CARBOPLATIN
     Indication: Small cell lung cancer
     Dosage: UNK
  2. ETOPOSIDE [Suspect]
     Active Substance: ETOPOSIDE
     Indication: Small cell lung cancer
     Dosage: 200 MG
     Route: 048
  3. ETOPOSIDE [Suspect]
     Active Substance: ETOPOSIDE
     Dosage: UNK
     Route: 042
  4. TECENTRIQ [Suspect]
     Active Substance: ATEZOLIZUMAB
     Indication: Small cell lung cancer
     Dosage: UNK
     Route: 065
  5. DEXAMETHASONE [Concomitant]
     Active Substance: DEXAMETHASONE
     Route: 065
  6. FILGRASTIM [Concomitant]
     Active Substance: FILGRASTIM
  7. FRAGMIN [Concomitant]
     Active Substance: DALTEPARIN SODIUM
  8. HYDROMORPHONE [Concomitant]
     Active Substance: HYDROMORPHONE
  9. LORAZEPAM [Concomitant]
     Active Substance: LORAZEPAM
     Route: 065
  10. MEMANTINE [Concomitant]
     Active Substance: MEMANTINE
  11. METOCLOPRAMIDE [Concomitant]
     Active Substance: METOCLOPRAMIDE
  12. NICOTINE [Concomitant]
     Active Substance: NICOTINE
  13. OLANZAPINE [Concomitant]
     Active Substance: OLANZAPINE
     Dosage: UNK
  14. OLANZAPINE [Concomitant]
     Active Substance: OLANZAPINE
     Dosage: UNK
  15. ONDANSETRON [Concomitant]
     Active Substance: ONDANSETRON
  16. PANTOPRAZOLE [Concomitant]
     Active Substance: PANTOPRAZOLE
  17. ZOLEDRONIC ACID [Concomitant]
     Active Substance: ZOLEDRONIC ACID

REACTIONS (2)
  - Febrile neutropenia [Recovered/Resolved]
  - Pneumonia [Recovered/Resolved]
